FAERS Safety Report 5463489-5 (Version None)
Quarter: 2007Q3

REPORT INFORMATION
  Report Type: 
  Country: None (occurrence: None)
  Receive Date: 20070920
  Receipt Date: 20070911
  Transmission Date: 20080115
  Serious: Yes (Other)
  Sender: FDA-Public Use
  Company Number: ID-PFIZER INC-2007075326

PATIENT
  Age: 50 Year
  Sex: Male

DRUGS (2)
  1. NORVASC [Suspect]
     Indication: ESSENTIAL HYPERTENSION
     Dosage: DAILY DOSE:5MG-TEXT:5 MG ONCE DAILY
     Route: 048
  2. NORVASC [Suspect]
     Dosage: DAILY DOSE:2.5MG-TEXT:2.5 MG ONCE DAILY
     Route: 048

REACTIONS (5)
  - COLD SWEAT [None]
  - ERECTILE DYSFUNCTION [None]
  - HYPOAESTHESIA [None]
  - IDIOSYNCRATIC DRUG REACTION [None]
  - SPEECH DISORDER [None]
